FAERS Safety Report 9500713 (Version 1)
Quarter: 2013Q3

REPORT INFORMATION
  Report Type: Spontaneous
  Country: FR (occurrence: FR)
  Receive Date: 20130905
  Receipt Date: 20130905
  Transmission Date: 20140515
  Serious: Yes (Other)
  Sender: FDA-Public Use
  Company Number: FR-009507513-1308FRA014889

PATIENT
  Age: 63 Year
  Sex: Female

DRUGS (12)
  1. EMEND [Suspect]
     Dosage: UNK
     Route: 048
     Dates: start: 20130628, end: 20130719
  2. ALIMTA [Suspect]
     Dosage: 23.809 MG/M2, CYCLICAL
     Route: 042
     Dates: start: 20130628, end: 20130719
  3. CISPLATIN MERCK [Suspect]
     Indication: LUNG CARCINOMA CELL TYPE UNSPECIFIED STAGE 0
     Dosage: 3.571 MG/M2, CYCLICAL
     Route: 042
     Dates: start: 20130628, end: 20130719
  4. SEROPRAM [Concomitant]
     Dosage: UNK
  5. KEPPRA [Concomitant]
     Dosage: UNK
  6. SOLUPRED [Concomitant]
     Dosage: UNK
  7. INEXIUM [Concomitant]
     Dosage: UNK
  8. DIFFU-K [Concomitant]
     Dosage: UNK
  9. STILNOX [Concomitant]
     Dosage: UNK
  10. ACETAMINOPHEN [Concomitant]
     Dosage: UNK
  11. PRIMPERAN [Concomitant]
     Dosage: UNK
  12. INNOHEP [Concomitant]
     Dosage: UNK

REACTIONS (2)
  - Gamma-glutamyltransferase increased [Not Recovered/Not Resolved]
  - Transaminases increased [Recovering/Resolving]
